FAERS Safety Report 7324499-6 (Version None)
Quarter: 2011Q1

REPORT INFORMATION
  Report Type: 
  Country: None (occurrence: None)
  Receive Date: 20110203
  Receipt Date: 20100630
  Transmission Date: 20110831
  Serious: Yes (Hospitalization)
  Sender: FDA-Public Use
  Company Number: 8053156

PATIENT
  Sex: Female

DRUGS (3)
  1. KEPPRA [Suspect]
     Indication: CONVULSION
     Dosage: (ORAL)
     Route: 048
  2. NEXIUM [Concomitant]
  3. DILANTIN [Suspect]
     Indication: CONVULSION
     Dosage: (ORAL)
     Route: 048

REACTIONS (5)
  - CAESAREAN SECTION [None]
  - PREMATURE LABOUR [None]
  - DRUG SCREEN POSITIVE [None]
  - VAGINAL HAEMORRHAGE [None]
  - PREGNANCY [None]
